FAERS Safety Report 5412958-2 (Version None)
Quarter: 2007Q3

REPORT INFORMATION
  Report Type: 
  Country: None (occurrence: None)
  Receive Date: 20070809
  Receipt Date: 20070730
  Transmission Date: 20080115
  Serious: Yes (Other)
  Sender: FDA-Public Use
  Company Number: GXKR2007DE06561

PATIENT
  Sex: Female

DRUGS (1)
  1. METFORMIN 1A PHARMA (NGX) (METFORMIN) UNKNOWN, 850 [Suspect]
     Indication: DIABETES MELLITUS
     Dosage: ORAL
     Route: 048

REACTIONS (1)
  - HEPATIC CIRRHOSIS [None]
